FAERS Safety Report 5964159-7 (Version None)
Quarter: 2008Q4

REPORT INFORMATION
  Report Type: 
  Country: None (occurrence: None)
  Receive Date: 20081124
  Receipt Date: 20081112
  Transmission Date: 20090506
  Serious: No
  Sender: FDA-Public Use
  Company Number: US-B.I. PHARMACEUTICALS,INC./RIDGEFIELD-2008-BP-10195BP

PATIENT
  Sex: Male

DRUGS (6)
  1. SPIRIVA [Suspect]
     Indication: CHRONIC OBSTRUCTIVE PULMONARY DISEASE
  2. SPIRIVA [Suspect]
     Indication: EMPHYSEMA
  3. SPIRIVA [Suspect]
     Indication: ASTHMA
  4. ALBUTEROL SULFATE [Concomitant]
     Indication: DYSPNOEA
  5. ATROVENT HFA [Concomitant]
     Indication: DYSPNOEA
  6. SEREVENT [Concomitant]
     Indication: DYSPNOEA

REACTIONS (1)
  - DRUG INEFFECTIVE [None]
